FAERS Safety Report 8446059-6 (Version None)
Quarter: 2012Q2

REPORT INFORMATION
  Report Type: 
  Country: None (occurrence: None)
  Receive Date: 20120618
  Receipt Date: 20120613
  Transmission Date: 20120825
  Serious: No
  Sender: FDA-Public Use
  Company Number: US-BAYER-2012-059395

PATIENT
  Age: 75 Year
  Sex: Female
  Weight: 56 kg

DRUGS (8)
  1. NAPROXEN (ALEVE) [Suspect]
     Indication: ANALGESIC THERAPY
     Dosage: 1 DF, QD
     Route: 048
  2. ALEVE (CAPLET) [Suspect]
     Dosage: 1 DF, QD
     Route: 048
  3. METOPROLOL SUCCINATE [Concomitant]
  4. CO Q10 [Concomitant]
  5. LOVASTATIN [Concomitant]
  6. CALCIUM CARBONATE [Concomitant]
  7. VITAMIN D [Concomitant]
  8. OMEPRAZOLE [Concomitant]

REACTIONS (1)
  - NO ADVERSE EVENT [None]
